FAERS Safety Report 17508477 (Version 1)
Quarter: 2020Q1

REPORT INFORMATION
  Report Type: Not Available
  Country: US (occurrence: US)
  Receive Date: 20200306
  Receipt Date: 20200306
  Transmission Date: 20200409
  Serious: Yes (Other)
  Sender: FDA-Public Use
  Company Number: US-EYEPOINT PHARMACEUTICALS, INC.-US-EYP-20-00047

PATIENT
  Age: 77 Year
  Sex: Female

DRUGS (10)
  1. PROLENSA [Concomitant]
     Active Substance: BROMFENAC SODIUM
     Indication: PRODUCT USED FOR UNKNOWN INDICATION
     Route: 061
     Dates: start: 20190804, end: 20190828
  2. PROLENSA [Concomitant]
     Active Substance: BROMFENAC SODIUM
     Route: 061
     Dates: start: 20190901, end: 20190925
  3. OMIDRIA [Concomitant]
     Active Substance: KETOROLAC\PHENYLEPHRINE
     Indication: PRODUCT USED FOR UNKNOWN INDICATION
     Route: 031
     Dates: start: 20190807, end: 20190807
  4. OMIDRIA [Concomitant]
     Active Substance: KETOROLAC\PHENYLEPHRINE
     Route: 031
     Dates: start: 20190904, end: 20190904
  5. DEXYCU [Suspect]
     Active Substance: DEXAMETHASONE
     Route: 031
     Dates: start: 20190904, end: 20190904
  6. POLYTRIM [Concomitant]
     Active Substance: POLYMYXIN B SULFATE\TRIMETHOPRIM SULFATE
     Route: 061
     Dates: start: 20190901, end: 20190918
  7. SINUS [Concomitant]
     Active Substance: ACETAMINOPHEN\CHLORPHENIRAMINE MALEATE\PHENYLEPHRINE HYDROCHLORIDE
     Indication: PRODUCT USED FOR UNKNOWN INDICATION
     Route: 048
  8. POLYTRIM [Concomitant]
     Active Substance: POLYMYXIN B SULFATE\TRIMETHOPRIM SULFATE
     Indication: PRODUCT USED FOR UNKNOWN INDICATION
     Route: 061
     Dates: start: 20190804, end: 20190814
  9. PRED FORTE [Concomitant]
     Active Substance: PREDNISOLONE ACETATE
     Indication: PRODUCT USED FOR UNKNOWN INDICATION
     Route: 061
     Dates: start: 20190906
  10. DEXYCU [Suspect]
     Active Substance: DEXAMETHASONE
     Indication: POST PROCEDURAL INFLAMMATION
     Route: 031
     Dates: start: 20190807, end: 20190807

REACTIONS (4)
  - Endophthalmitis [Unknown]
  - Retinal drusen [Unknown]
  - Anterior chamber cell [Recovering/Resolving]
  - Visual acuity reduced [Recovered/Resolved]
